FAERS Safety Report 19087144 (Version 1)
Quarter: 2021Q2

REPORT INFORMATION
  Report Type: Spontaneous
  Country: US (occurrence: US)
  Receive Date: 20210402
  Receipt Date: 20210402
  Transmission Date: 20210717
  Serious: Yes (Other)
  Sender: FDA-Public Use
  Company Number: US-BAYER-2021-114682

PATIENT
  Sex: Female

DRUGS (14)
  1. PROBIOTIC ACIDOPHILUS [LACTOBACILLUS ACIDOPHILUS] [Concomitant]
  2. CARAFATE [Concomitant]
     Active Substance: SUCRALFATE
  3. BETASERON [Suspect]
     Active Substance: INTERFERON BETA-1B
     Indication: MULTIPLE SCLEROSIS
     Dosage: UNK
     Dates: start: 1994
  4. BIOTIN [Concomitant]
     Active Substance: BIOTIN
  5. LEXAPRO [Concomitant]
     Active Substance: ESCITALOPRAM OXALATE
  6. BACTRIM DS [Concomitant]
     Active Substance: SULFAMETHOXAZOLE\TRIMETHOPRIM
  7. PROMETHAZINE [Concomitant]
     Active Substance: PROMETHAZINE HYDROCHLORIDE
  8. B?COMPLEX [VITAMIN B NOS] [Concomitant]
     Active Substance: VITAMINS
  9. CALCIUM D3 [Concomitant]
     Active Substance: CALCIUM\CHOLECALCIFEROL
  10. ASCORBIC ACID. [Concomitant]
     Active Substance: ASCORBIC ACID
  11. WELLBUTRIN [Concomitant]
     Active Substance: BUPROPION HYDROCHLORIDE
  12. XIIDRA [Concomitant]
     Active Substance: LIFITEGRAST
  13. DULCOLAX (BISACODYL) [Concomitant]
     Active Substance: BISACODYL
  14. COLACE [Concomitant]
     Active Substance: DOCUSATE SODIUM

REACTIONS (1)
  - Multiple sclerosis relapse [Unknown]
